FAERS Safety Report 18007064 (Version 8)
Quarter: 2020Q3

REPORT INFORMATION
  Report Type: Spontaneous
  Country: US (occurrence: US)
  Receive Date: 20200710
  Receipt Date: 20200911
  Transmission Date: 20201103
  Serious: Yes (Other)
  Sender: FDA-Public Use
  Company Number: US-009507513-2007USA003146

PATIENT
  Age: 54 Year
  Sex: Female

DRUGS (2)
  1. NEXPLANON [Suspect]
     Active Substance: ETONOGESTREL
     Dosage: 1 IMPLANT
     Route: 059
  2. NEXPLANON [Suspect]
     Active Substance: ETONOGESTREL
     Dosage: 1 IMPLANT IN RIGHT ARM
     Route: 059
     Dates: start: 2017

REACTIONS (8)
  - Device placement issue [Recovered/Resolved]
  - Device issue [Not Recovered/Not Resolved]
  - No adverse event [Unknown]
  - Device embolisation [Not Recovered/Not Resolved]
  - Complication associated with device [Not Recovered/Not Resolved]
  - Incorrect product administration duration [Unknown]
  - Device deployment issue [Not Recovered/Not Resolved]
  - Complication of device removal [Not Recovered/Not Resolved]

NARRATIVE: CASE EVENT DATE: 2017
